FAERS Safety Report 12196351 (Version 1)
Quarter: 2016Q1

REPORT INFORMATION
  Report Type: Spontaneous
  Country: TR (occurrence: TR)
  Receive Date: 20160321
  Receipt Date: 20160321
  Transmission Date: 20160526
  Serious: Yes (Other)
  Sender: FDA-Public Use
  Company Number: TR-JNJFOC-20160313630

PATIENT

DRUGS (2)
  1. THALIDOMIDE [Concomitant]
     Active Substance: THALIDOMIDE
     Route: 065
  2. INFLIXIMAB, RECOMBINANT [Suspect]
     Active Substance: INFLIXIMAB
     Indication: BEHCET^S SYNDROME
     Dosage: 5 MG/KG GIVEN AT BASELINE, 2ND AND 6TH WEEKS AND EVERY 8 WEEKS
     Route: 042

REACTIONS (3)
  - Off label use [Unknown]
  - Ileal ulcer [Unknown]
  - Product use issue [Unknown]
